FAERS Safety Report 23083094 (Version 1)
Quarter: 2023Q4

REPORT INFORMATION
  Report Type: Spontaneous
  Country: US (occurrence: None)
  Receive Date: 20231018
  Receipt Date: 20231018
  Transmission Date: 20240110
  Serious: Yes (Hospitalization)
  Sender: FDA-Public Use
  Company Number: None

PATIENT
  Age: 63 Year
  Sex: Male
  Weight: 93.8 kg

DRUGS (1)
  1. CLOZAPINE [Suspect]
     Active Substance: CLOZAPINE
     Dosage: FREQUENCY : TWICE A DAY;?
     Route: 048
     Dates: start: 20140108

REACTIONS (4)
  - Orthostatic hypotension [None]
  - Gait disturbance [None]
  - Fall [None]
  - Supine hypertension [None]

NARRATIVE: CASE EVENT DATE: 20221127
